FAERS Safety Report 17587432 (Version 4)
Quarter: 2021Q4

REPORT INFORMATION
  Report Type: Spontaneous
  Country: US (occurrence: US)
  Receive Date: 20200326
  Receipt Date: 20211025
  Transmission Date: 20220303
  Serious: Yes (Death, Hospitalization)
  Sender: FDA-Public Use
  Company Number: US-JNJFOC-20200318124

PATIENT
  Age: 75 Year
  Sex: Male

DRUGS (3)
  1. ERDAFITINIB [Suspect]
     Active Substance: ERDAFITINIB
     Indication: Product used for unknown indication
     Route: 048
     Dates: start: 20200710, end: 20200725
  2. ERDAFITINIB [Suspect]
     Active Substance: ERDAFITINIB
     Route: 048
  3. VALSARTAN [Concomitant]
     Active Substance: VALSARTAN
     Indication: Hypertension
     Dates: start: 20200401, end: 20200531

REACTIONS (5)
  - Death [Fatal]
  - Pelvic neoplasm [Not Recovered/Not Resolved]
  - Hypoacusis [Unknown]
  - Gastric hypermotility [Not Recovered/Not Resolved]
  - Decreased appetite [Not Recovered/Not Resolved]
